FAERS Safety Report 7679235-0 (Version None)
Quarter: 2011Q3

REPORT INFORMATION
  Report Type: 
  Country: None (occurrence: None)
  Receive Date: 20110812
  Receipt Date: 20110801
  Transmission Date: 20111222
  Serious: Yes (Hospitalization)
  Sender: FDA-Public Use
  Company Number: TN-RANBAXY-2011RR-46680

PATIENT
  Age: 66 Year
  Sex: Female

DRUGS (5)
  1. INSULIN BOVINE [Concomitant]
     Indication: DIABETES MELLITUS
     Dosage: UNK
     Route: 065
     Dates: start: 20100809
  2. FENOFIBRATE [Suspect]
     Indication: DYSLIPIDAEMIA
     Dosage: UNK
     Route: 065
     Dates: start: 20100610, end: 20100809
  3. LEVOTHYROXINE SODIUM [Concomitant]
     Indication: POSTPARTUM HYPOPITUITARISM
     Dosage: UNK
     Route: 065
     Dates: start: 20000101
  4. NIFEDIPINE [Concomitant]
     Indication: HYPERTENSION
     Dosage: UNK
     Route: 065
     Dates: start: 20080101
  5. HYDROCORTISONE SODIUM SUCCINATE [Concomitant]
     Indication: POSTPARTUM HYPOPITUITARISM
     Dosage: UNK
     Route: 065
     Dates: start: 20000101

REACTIONS (1)
  - DRUG RASH WITH EOSINOPHILIA AND SYSTEMIC SYMPTOMS [None]
